FAERS Safety Report 5383514-X (Version None)
Quarter: 2007Q3

REPORT INFORMATION
  Report Type: 
  Country: None (occurrence: None)
  Receive Date: 20070706
  Receipt Date: 20070629
  Transmission Date: 20080115
  Serious: Yes (Other)
  Sender: FDA-Public Use
  Company Number: 2007EN000054

PATIENT
  Age: 14 Year
  Sex: Female

DRUGS (1)
  1. ADAGEN [Suspect]
     Indication: COMBINED IMMUNODEFICIENCY
     Dosage: 30 IU/KG; BIW; IM
     Route: 030

REACTIONS (11)
  - ARTHRALGIA [None]
  - BACTERIAL INFECTION [None]
  - BLOOD LACTATE DEHYDROGENASE INCREASED [None]
  - BURKITT'S LYMPHOMA [None]
  - CYTOMEGALOVIRUS INFECTION [None]
  - DISEASE RECURRENCE [None]
  - GAIT DISTURBANCE [None]
  - HERPES SIMPLEX [None]
  - HERPES ZOSTER [None]
  - OTITIS MEDIA [None]
  - PNEUMONIA [None]
